FAERS Safety Report 15767859 (Version 1)
Quarter: 2018Q4

REPORT INFORMATION
  Report Type: Spontaneous
  Country: GR (occurrence: GR)
  Receive Date: 20181227
  Receipt Date: 20181227
  Transmission Date: 20190205
  Serious: Yes (Other)
  Sender: FDA-Public Use
  Company Number: GR-MYLANLABS-2018M1095979

PATIENT
  Age: 32 Year
  Sex: Male

DRUGS (2)
  1. CLINDAMYCIN. [Concomitant]
     Active Substance: CLINDAMYCIN
     Indication: LUNG ABSCESS
     Dosage: UNK
     Route: 042
  2. MOXIFLOXACIN. [Suspect]
     Active Substance: MOXIFLOXACIN
     Indication: LUNG ABSCESS
     Dosage: UNK
     Route: 042

REACTIONS (4)
  - Lung abscess [Unknown]
  - Vitreous opacities [Unknown]
  - Pyrexia [Unknown]
  - Condition aggravated [Unknown]
